FAERS Safety Report 4884561-4 (Version None)
Quarter: 2005Q4

REPORT INFORMATION
  Report Type: 
  Country: None (occurrence: None)
  Receive Date: 20051201
  Receipt Date: 20050914
  Transmission Date: 20060501
  Serious: No
  Sender: FDA-Public Use
  Company Number: 2005PV002111

PATIENT
  Age: 43 Year
  Sex: Female
  Weight: 136.0791 kg

DRUGS (11)
  1. BYETTA [Suspect]
     Indication: DIABETES MELLITUS NON-INSULIN-DEPENDENT
     Dosage: SEE IMAGE
     Route: 058
     Dates: start: 20050907, end: 20050915
  2. BYETTA [Suspect]
     Indication: DIABETES MELLITUS NON-INSULIN-DEPENDENT
     Dosage: SEE IMAGE
     Route: 058
     Dates: start: 20050916
  3. ZITHROMAX [Suspect]
     Dates: start: 20050913, end: 20050918
  4. NIZORAL [Concomitant]
  5. SINGULAIR [Concomitant]
  6. ALLEGRA [Concomitant]
  7. FLONASE SPRAY [Concomitant]
  8. GLUCOPHAGE [Concomitant]
  9. AMBIEN [Concomitant]
  10. BACTRIM [Concomitant]
  11. ZITHROMAX [Concomitant]

REACTIONS (5)
  - BLOOD GLUCOSE DECREASED [None]
  - DECREASED APPETITE [None]
  - MIDDLE EAR EFFUSION [None]
  - OTITIS MEDIA [None]
  - PYREXIA [None]
